FAERS Safety Report 8542243-1 (Version None)
Quarter: 2012Q3

REPORT INFORMATION
  Report Type: 
  Country: None (occurrence: None)
  Receive Date: 20120726
  Receipt Date: 20120305
  Transmission Date: 20120928
  Serious: No
  Sender: FDA-Public Use
  Company Number: US-ASTRAZENECA-2011SE61748

PATIENT
  Age: 58 Year
  Sex: Female
  Weight: 90.7 kg

DRUGS (7)
  1. SEROQUEL XR [Suspect]
     Route: 048
     Dates: start: 20110101
  2. SIMBALTA/CYMBALTA [Concomitant]
     Indication: DEPRESSION
  3. VITAMINS(CALCIUM, D, B, E, MULTIVITAMINS) [Concomitant]
     Indication: VITAMIN SUPPLEMENTATION
  4. SEROQUEL XR [Suspect]
     Indication: DEPRESSION
     Route: 048
  5. SEROQUEL XR [Suspect]
     Route: 048
     Dates: start: 20110101
  6. GLIPIZIDE [Concomitant]
     Indication: DIABETES MELLITUS
  7. SEROQUEL XR [Suspect]
     Route: 048

REACTIONS (5)
  - DRUG DOSE OMISSION [None]
  - INSOMNIA [None]
  - ABDOMINAL DISCOMFORT [None]
  - EYE ALLERGY [None]
  - PRURITUS GENERALISED [None]
